FAERS Safety Report 4989919-0 (Version None)
Quarter: 2006Q2

REPORT INFORMATION
  Report Type: 
  Country: None (occurrence: None)
  Receive Date: 20060503
  Receipt Date: 20060420
  Transmission Date: 20061013
  Serious: Yes (Hospitalization)
  Sender: FDA-Public Use
  Company Number: GB-SOLVAY-00206001404

PATIENT
  Age: 91 Year
  Sex: Male

DRUGS (11)
  1. CEPHALEXIN [Concomitant]
     Indication: ILL-DEFINED DISORDER
     Dosage: DAILY DOSE:  UNKNOWN
     Route: 065
  2. COVERSYL [Suspect]
     Indication: BLOOD PRESSURE INCREASED
     Dosage: DAILY DOSE: 4 MILLIGRAM(S)
     Route: 048
     Dates: end: 20060405
  3. DIGOXIN [Suspect]
     Indication: ATRIAL FIBRILLATION
     Dosage: DAILY DOSE: 125 MICROGRAM(S)
     Route: 048
     Dates: start: 20051201, end: 20060405
  4. BISOPROLOL [Concomitant]
     Indication: ILL-DEFINED DISORDER
     Dosage: DAILY DOSE:  UNKNOWN
     Route: 065
  5. SALBUTAMOL [Concomitant]
     Indication: ILL-DEFINED DISORDER
     Dosage: DAILY DOSE:  UNKNOWN
     Route: 065
  6. FRUSEMIDE [Suspect]
     Indication: POLYURIA
     Dosage: DAILY DOSE:  UNKNOWN
     Route: 065
     Dates: end: 20060405
  7. ATROVENT [Concomitant]
     Indication: ILL-DEFINED DISORDER
     Dosage: DAILY DOSE:  UNKNOWN
     Route: 065
  8. SPIRONOLACTONE [Suspect]
     Indication: POLYURIA
     Dosage: DAILY DOSE: 25 MILLIGRAM(S)
     Route: 048
     Dates: end: 20060405
  9. AMIODARONE HCL [Suspect]
     Indication: ATRIAL FIBRILLATION
     Dosage: DAILY DOSE: 200 MILLIGRAM(S)
     Route: 048
     Dates: start: 20051201, end: 20060405
  10. FLUTICASONE PROPIONATE [Concomitant]
     Indication: ILL-DEFINED DISORDER
     Dosage: DAILY DOSE:  UNKNOWN
     Route: 065
  11. ARCOXIA [Suspect]
     Indication: ARTHRITIS
     Dosage: DAILY DOSE: 80 MILLIGRAM(S)
     Route: 048
     Dates: start: 20060201, end: 20060405

REACTIONS (5)
  - ARTHRITIS [None]
  - ATRIAL FIBRILLATION [None]
  - CARDIOACTIVE DRUG LEVEL INCREASED [None]
  - LIVER FUNCTION TEST ABNORMAL [None]
  - RENAL FAILURE ACUTE [None]
